FAERS Safety Report 6181007-3 (Version None)
Quarter: 2009Q2

REPORT INFORMATION
  Report Type: 
  Country: None (occurrence: None)
  Receive Date: 20090504
  Receipt Date: 20090504
  Transmission Date: 20091009
  Serious: No
  Sender: FDA-Public Use
  Company Number: None

PATIENT
  Age: 20 Year
  Sex: Female
  Weight: 57.6068 kg

DRUGS (4)
  1. DEPO-PROVERA [Suspect]
     Indication: CONTRACEPTION
     Dosage: 1 SHOT 1 TIME EVERY 4 MON
     Dates: start: 20080712, end: 20081123
  2. DEPO-PROVERA [Suspect]
     Indication: MENORRHAGIA
     Dosage: 1 SHOT 1 TIME EVERY 4 MON
     Dates: start: 20080712, end: 20081123
  3. DEPO-PROVERA [Suspect]
     Indication: CONTRACEPTION
     Dosage: 1 SHOT 1 TIME EVERY 4 MON
     Dates: start: 20090221
  4. DEPO-PROVERA [Suspect]
     Indication: MENORRHAGIA
     Dosage: 1 SHOT 1 TIME EVERY 4 MON
     Dates: start: 20090221

REACTIONS (2)
  - CARDIAC FLUTTER [None]
  - CARDIAC MURMUR [None]
